FAERS Safety Report 13037121 (Version 1)
Quarter: 2016Q4

REPORT INFORMATION
  Report Type: Spontaneous
  Country: FR (occurrence: FR)
  Receive Date: 20161216
  Receipt Date: 20161216
  Transmission Date: 20170207
  Serious: Yes (Hospitalization)
  Sender: FDA-Public Use
  Company Number: FR-BAXTER-2016BAX062322

PATIENT
  Age: 52 Year
  Sex: Female

DRUGS (13)
  1. IFOSFAMIDE EG [Suspect]
     Active Substance: IFOSFAMIDE
     Indication: SOFT TISSUE SARCOMA
     Dosage: INFUSION
     Route: 042
     Dates: start: 20160718, end: 20160718
  2. IFOSFAMIDE EG [Suspect]
     Active Substance: IFOSFAMIDE
     Dosage: INFUSION
     Route: 042
     Dates: start: 20160719, end: 20160719
  3. PREDNISOLONE BIOGARAN [Suspect]
     Active Substance: PREDNISOLONE
     Indication: PREMEDICATION
     Route: 065
     Dates: start: 20160718, end: 20160718
  4. ONDANSETRON ACCORD [Suspect]
     Active Substance: ONDANSETRON
     Route: 048
     Dates: start: 20160718, end: 20160718
  5. CITALOPRAM BIOGARAN [Concomitant]
     Active Substance: CITALOPRAM HYDROBROMIDE
     Indication: DRUG THERAPY
     Route: 065
  6. UROMITEXAN 5 G/50 ML, SOLUTION INJECTABLE POUR PERFUSION EN FLACON [Suspect]
     Active Substance: MESNA
     Indication: PRODUCT USED FOR UNKNOWN INDICATION
     Dosage: INFUSION
     Route: 042
     Dates: start: 20160718, end: 20160718
  7. UROMITEXAN 5 G/50 ML, SOLUTION INJECTABLE POUR PERFUSION EN FLACON [Suspect]
     Active Substance: MESNA
     Dosage: INFUSION
     Route: 042
     Dates: start: 20160719, end: 20160719
  8. IMOVANE [Concomitant]
     Active Substance: ZOPICLONE
     Indication: DRUG THERAPY
     Route: 065
  9. ONDANSETRON ACCORD [Suspect]
     Active Substance: ONDANSETRON
     Route: 048
     Dates: start: 20160719, end: 20160719
  10. PRIMPERAN [Suspect]
     Active Substance: METOCLOPRAMIDE HYDROCHLORIDE
     Indication: PREMEDICATION
     Route: 065
     Dates: start: 20160718, end: 20160718
  11. ONDANSETRON ACCORD [Suspect]
     Active Substance: ONDANSETRON
     Indication: PREMEDICATION
     Dosage: 1 IV INJECTION
     Route: 042
     Dates: start: 20160718, end: 20160718
  12. ONDANSETRON ACCORD [Suspect]
     Active Substance: ONDANSETRON
     Dosage: 1 IV INJECTION
     Route: 042
     Dates: start: 20160719, end: 20160719
  13. METHYLPREDNISOLONE. [Suspect]
     Active Substance: METHYLPREDNISOLONE
     Indication: PREMEDICATION
     Dosage: 1 IV INJECTION
     Route: 042
     Dates: start: 20160718, end: 20160718

REACTIONS (1)
  - Encephalopathy [Recovered/Resolved]

NARRATIVE: CASE EVENT DATE: 20160719
